FAERS Safety Report 11611848 (Version 1)
Quarter: 2015Q4

REPORT INFORMATION
  Report Type: Spontaneous
  Country: US (occurrence: US)
  Receive Date: 20151008
  Receipt Date: 20151008
  Transmission Date: 20160304
  Serious: No
  Sender: FDA-Public Use
  Company Number: US-MALLINCKRODT-T201502201

PATIENT

DRUGS (1)
  1. MIXED AMPHETAMINE SALTS [Suspect]
     Active Substance: AMPHETAMINE ASPARTATE\AMPHETAMINE SULFATE\DEXTROAMPHETAMINE SACCHARATE\DEXTROAMPHETAMINE SULFATE
     Indication: ATTENTION DEFICIT/HYPERACTIVITY DISORDER
     Dosage: 15 MG, UNK
     Route: 065

REACTIONS (12)
  - Depression [Unknown]
  - Diarrhoea [Unknown]
  - Dyspnoea [Unknown]
  - Painful defaecation [Unknown]
  - Malaise [Unknown]
  - Cold sweat [Unknown]
  - Nightmare [Unknown]
  - Drug ineffective [Unknown]
  - Product taste abnormal [Unknown]
  - Feeling abnormal [Unknown]
  - Crying [Unknown]
  - Hostility [Unknown]
